FAERS Safety Report 5858259-X (Version None)
Quarter: 2008Q3

REPORT INFORMATION
  Report Type: 
  Country: None (occurrence: None)
  Receive Date: 20080826
  Receipt Date: 20080821
  Transmission Date: 20090109
  Serious: Yes (Hospitalization)
  Sender: FDA-Public Use
  Company Number: A0744147A

PATIENT
  Age: 60 Year
  Sex: Male
  Weight: 102.7 kg

DRUGS (10)
  1. AVANDIA [Suspect]
     Indication: DIABETES MELLITUS
     Dosage: 4MG PER DAY
     Route: 048
     Dates: start: 20030701, end: 20040601
  2. METFORMIN HCL [Concomitant]
     Dates: start: 20030613, end: 20080303
  3. NOVOLIN [Concomitant]
     Dates: start: 20030603, end: 20080317
  4. PREDNISONE TAB [Concomitant]
     Dates: start: 20030813, end: 20070401
  5. ATENOLOL [Concomitant]
     Dates: start: 20030601, end: 20061101
  6. METHYLPREDNISOLONE [Concomitant]
     Dates: start: 20030507, end: 20060520
  7. LORAZEPAM [Concomitant]
  8. RANITIDINE [Concomitant]
  9. FLUTICASONE PROPIONATE [Concomitant]
  10. ALBUTEROL [Concomitant]

REACTIONS (1)
  - CEREBROVASCULAR ACCIDENT [None]
